FAERS Safety Report 26196146 (Version 1)
Quarter: 2025Q4

REPORT INFORMATION
  Report Type: Spontaneous
  Country: US (occurrence: US)
  Receive Date: 20251224
  Receipt Date: 20251224
  Transmission Date: 20260117
  Serious: Yes (Hospitalization, Other)
  Sender: RANBAXY
  Company Number: US-SUN PHARMACEUTICAL INDUSTRIES INC-2025R1-543406

PATIENT
  Sex: Male

DRUGS (3)
  1. FLUOROURACIL [Suspect]
     Active Substance: FLUOROURACIL
     Indication: Colon cancer metastatic
     Dosage: UNK
     Route: 065
  2. OXALIPLATIN [Suspect]
     Active Substance: OXALIPLATIN
     Indication: Colon cancer metastatic
     Dosage: UNK
     Route: 065
  3. LEUCOVORIN CALCIUM [Suspect]
     Active Substance: LEUCOVORIN CALCIUM
     Indication: Colon cancer metastatic
     Dosage: UNK
     Route: 065

REACTIONS (2)
  - Neutropenia [Unknown]
  - Pneumonia [Unknown]
